FAERS Safety Report 9442484 (Version 9)
Quarter: 2016Q3

REPORT INFORMATION
  Report Type: Spontaneous
  Country: US (occurrence: US)
  Receive Date: 20130806
  Receipt Date: 20160705
  Transmission Date: 20161109
  Serious: Yes (Other)
  Sender: FDA-Public Use
  Company Number: US-JNJFOC-20130801000

PATIENT

DRUGS (1)
  1. REMICADE [Suspect]
     Active Substance: INFLIXIMAB
     Indication: CROHN^S DISEASE
     Route: 042

REACTIONS (12)
  - Lupus-like syndrome [Unknown]
  - Neurological symptom [Unknown]
  - Psoriasis [Unknown]
  - Therapeutic response decreased [Unknown]
  - Viral infection [Unknown]
  - Systemic lupus erythematosus [Unknown]
  - Bacterial infection [Unknown]
  - Skin disorder [Unknown]
  - Drug ineffective [Unknown]
  - Infusion related reaction [Unknown]
  - Adverse drug reaction [Unknown]
  - Rheumatic disorder [Unknown]
